FAERS Safety Report 21217115 (Version 1)
Quarter: 2022Q3

REPORT INFORMATION
  Report Type: Spontaneous
  Country: US (occurrence: None)
  Receive Date: 20220816
  Receipt Date: 20220816
  Transmission Date: 20221027
  Serious: No
  Sender: FDA-Public Use
  Company Number: US-ROCHE-3083960

PATIENT
  Age: 72 Year
  Sex: Female
  Weight: 86.714 kg

DRUGS (1)
  1. ALECENSA [Suspect]
     Active Substance: ALECTINIB HYDROCHLORIDE
     Indication: Lung neoplasm malignant
     Dosage: 150 MG TABLETS I TAKE 4 IN THE AM EQUALING 600MG, AND 150MG TABLETS, I TAKE 4 IN THE EVENING 600MG ;
     Route: 048
     Dates: start: 20211118

REACTIONS (6)
  - Sunburn [Unknown]
  - Muscle spasms [Unknown]
  - Pain [Unknown]
  - Pain [Unknown]
  - Dysgeusia [Unknown]
  - Lip swelling [Unknown]

NARRATIVE: CASE EVENT DATE: 20220401
